FAERS Safety Report 24547665 (Version 1)
Quarter: 2024Q4

REPORT INFORMATION
  Report Type: Report from Study
  Country: CL (occurrence: CL)
  Receive Date: 20241025
  Receipt Date: 20241025
  Transmission Date: 20250115
  Serious: Yes (Hospitalization, Other)
  Sender: SANDOZ
  Company Number: CL-SANDOZ-SDZ2024CL089457

PATIENT
  Age: 11 Year
  Sex: Female
  Weight: 20 kg

DRUGS (1)
  1. OMNITROPE [Suspect]
     Active Substance: SOMATROPIN
     Indication: Product used for unknown indication
     Dosage: UNK, QD
     Route: 058
     Dates: start: 20221219, end: 20230716

REACTIONS (2)
  - Central nervous system vasculitis [Not Recovered/Not Resolved]
  - Loss of personal independence in daily activities [Not Recovered/Not Resolved]

NARRATIVE: CASE EVENT DATE: 20230716
